FAERS Safety Report 11865707 (Version 2)
Quarter: 2016Q3

REPORT INFORMATION
  Report Type: Spontaneous
  Country: US (occurrence: US)
  Receive Date: 20151223
  Receipt Date: 20160804
  Transmission Date: 20161109
  Serious: Yes (Other)
  Sender: FDA-Public Use
  Company Number: US-JNJFOC-20151210905

PATIENT
  Age: 60 Year
  Sex: Female
  Weight: 107.5 kg

DRUGS (5)
  1. CIPROFLOXACIN. [Suspect]
     Active Substance: CIPROFLOXACIN
     Indication: MICTURITION URGENCY
     Route: 048
     Dates: start: 20141215, end: 20141220
  2. LEVAQUIN [Suspect]
     Active Substance: LEVOFLOXACIN
     Indication: NASAL CONGESTION
     Route: 048
     Dates: start: 20090130, end: 20090202
  3. LEVAQUIN [Suspect]
     Active Substance: LEVOFLOXACIN
     Indication: SINUSITIS
     Route: 048
     Dates: start: 20090130, end: 20090202
  4. LEVAQUIN [Suspect]
     Active Substance: LEVOFLOXACIN
     Indication: COUGH
     Route: 048
     Dates: start: 20090130, end: 20090202
  5. CIPROFLOXACIN. [Suspect]
     Active Substance: CIPROFLOXACIN
     Indication: MICTURITION URGENCY
     Route: 048
     Dates: start: 20100126, end: 20100130

REACTIONS (3)
  - Immobile [Unknown]
  - Tendon pain [Unknown]
  - Neuropathy peripheral [Not Recovered/Not Resolved]

NARRATIVE: CASE EVENT DATE: 20090131
